FAERS Safety Report 7533611-5 (Version None)
Quarter: 2011Q2

REPORT INFORMATION
  Report Type: 
  Country: None (occurrence: None)
  Receive Date: 20110608
  Receipt Date: 20060307
  Transmission Date: 20111010
  Serious: Yes (Hospitalization, Other)
  Sender: FDA-Public Use
  Company Number: PHFR2006GB00797

PATIENT
  Sex: Male

DRUGS (7)
  1. LANSOPRAZOLE [Concomitant]
     Indication: DYSPEPSIA
     Dosage: 30 MG, QD
     Route: 048
  2. PROCYCLIDINE HYDROCHLORIDE 2MG TAB [Concomitant]
     Indication: EXTRAPYRAMIDAL DISORDER
     Dosage: 5 MG, TID
     Route: 048
  3. HALOPERIDOL [Concomitant]
     Indication: SCHIZOPHRENIA
     Dosage: 3.5 MG, QD
     Route: 048
  4. CLOZAPINE [Suspect]
     Indication: SCHIZOPHRENIA
     Dosage: 70 MG, QD
     Route: 048
     Dates: start: 19970814
  5. NIZATIDINE [Concomitant]
     Dosage: 150 MG, BID
     Route: 048
  6. ATORVASTATIN [Concomitant]
     Indication: HYPERLIPIDAEMIA
     Dosage: 10 MG, QD
     Route: 048
  7. ASPIRIN [Concomitant]
     Indication: HYPERTENSION
     Dosage: 75 MG, QD
     Route: 048

REACTIONS (5)
  - WEIGHT DECREASED [None]
  - RECTAL HAEMORRHAGE [None]
  - HAEMOGLOBIN DECREASED [None]
  - IRON DEFICIENCY ANAEMIA [None]
  - PNEUMONIA [None]
